FAERS Safety Report 4357593-2 (Version None)
Quarter: 2004Q2

REPORT INFORMATION
  Report Type: 
  Country: None (occurrence: None)
  Receive Date: 20040512
  Receipt Date: 20040512
  Transmission Date: 20050107
  Serious: Yes (Life-Threatening, Hospitalization)
  Sender: FDA-Public Use
  Company Number: None

PATIENT
  Age: 62 Year
  Sex: Female

DRUGS (14)
  1. NEORAL [Suspect]
     Indication: LUNG TRANSPLANT
     Dosage: 325 MG Q 12 HOURS ORAL
     Route: 048
     Dates: start: 20040215, end: 20040318
  2. PREDNISONE [Concomitant]
  3. CELLCEPT [Concomitant]
  4. PEPCID [Concomitant]
  5. MULTI-VITAMIN [Concomitant]
  6. MAGNESIUM OXIDE [Concomitant]
  7. FOLIC ACID [Concomitant]
  8. FLAGYL [Concomitant]
  9. VALCYTE [Concomitant]
  10. NYSTATIN [Concomitant]
  11. MYCELEX [Concomitant]
  12. VITAMIN B-12 [Concomitant]
  13. COUMADIN [Concomitant]
  14. BACTRIM [Concomitant]

REACTIONS (3)
  - COMA [None]
  - CONVULSION [None]
  - HEADACHE [None]
